FAERS Safety Report 8489712-0 (Version None)
Quarter: 2012Q3

REPORT INFORMATION
  Report Type: 
  Country: None (occurrence: None)
  Receive Date: 20120705
  Receipt Date: 20120629
  Transmission Date: 20120928
  Serious: Yes (Hospitalization)
  Sender: FDA-Public Use
  Company Number: JP-GLAXOSMITHKLINE-B0798334A

PATIENT
  Sex: Female
  Weight: 47 kg

DRUGS (2)
  1. VALTREX [Suspect]
     Indication: HERPES ZOSTER
     Dosage: 500MG PER DAY
     Route: 048
     Dates: start: 20110524, end: 20110531
  2. ZOVIRAX [Concomitant]
     Route: 061
     Dates: start: 20110524, end: 20110531

REACTIONS (16)
  - FALL [None]
  - CONVULSION [None]
  - DYSLALIA [None]
  - RASH [None]
  - JOINT RANGE OF MOTION DECREASED [None]
  - SCAB [None]
  - ENCEPHALOPATHY [None]
  - PLEURAL EFFUSION [None]
  - SOMNOLENCE [None]
  - GROIN PAIN [None]
  - LOSS OF CONSCIOUSNESS [None]
  - ALTERED STATE OF CONSCIOUSNESS [None]
  - FEMUR FRACTURE [None]
  - DYSARTHRIA [None]
  - DEPRESSED LEVEL OF CONSCIOUSNESS [None]
  - DISORIENTATION [None]
